FAERS Safety Report 5870640-1 (Version None)
Quarter: 2008Q3

REPORT INFORMATION
  Report Type: 
  Country: None (occurrence: None)
  Receive Date: 20080904
  Receipt Date: 20080826
  Transmission Date: 20090109
  Serious: Yes (Death, Hospitalization, Other)
  Sender: FDA-Public Use
  Company Number: PHHY2008JP19329

PATIENT
  Sex: Male

DRUGS (7)
  1. ZOMETA [Suspect]
     Indication: LUNG NEOPLASM MALIGNANT
     Dosage: 4 MG, UNK
     Route: 042
     Dates: start: 20070823
  2. OXYCONTIN [Concomitant]
     Dosage: 30 MG, UNK
     Route: 048
     Dates: start: 20070806
  3. NOVAMIN [Concomitant]
     Dosage: 10 MG, UNK
     Route: 048
     Dates: start: 20080706
  4. MUCOSTA [Concomitant]
     Dosage: 3 DF, UNK
     Route: 048
     Dates: start: 20070806
  5. NAIXAN [Concomitant]
     Dosage: 300 MG, UNK
     Route: 048
     Dates: start: 20080706
  6. PREDONINE [Concomitant]
     Dosage: 30 MG, UNK
     Route: 048
     Dates: start: 20070806, end: 20070901
  7. FERROMIA [Concomitant]
     Dosage: 100 MG, UNK
     Route: 048
     Dates: start: 20070806

REACTIONS (7)
  - CARDIAC FAILURE [None]
  - HYPOCALCAEMIA [None]
  - MALIGNANT NEOPLASM PROGRESSION [None]
  - NAUSEA [None]
  - PULMONARY OEDEMA [None]
  - RESPIRATORY FAILURE [None]
  - VOMITING [None]
